FAERS Safety Report 4745097-4 (Version None)
Quarter: 2005Q3

REPORT INFORMATION
  Report Type: 
  Country: None (occurrence: None)
  Receive Date: 20050815
  Receipt Date: 20050808
  Transmission Date: 20060218
  Serious: Yes (Death)
  Sender: FDA-Public Use
  Company Number: US-JNJFOC-20050400226

PATIENT
  Age: 91 Year
  Sex: Female

DRUGS (6)
  1. EXTRA STRENGTH TYLENOL [Suspect]
     Indication: INSOMNIA
  2. EXTRA STRENGTH TYLENOL [Suspect]
     Indication: PAIN
  3. PERCOCET [Concomitant]
  4. PERCOCET [Concomitant]
  5. BLOOD THINNER [Concomitant]
  6. TYLENOL (CAPLET) [Concomitant]

REACTIONS (6)
  - ABNORMAL DREAMS [None]
  - DEATH [None]
  - HALLUCINATION [None]
  - HALLUCINATION, VISUAL [None]
  - INAPPROPRIATE SCHEDULE OF DRUG ADMINISTRATION [None]
  - VISUAL DISTURBANCE [None]
